FAERS Safety Report 8762174 (Version 2)
Quarter: 2012Q4

REPORT INFORMATION
  Report Type: 
  Country: BR (occurrence: BR)
  Receive Date: 20120828
  Receipt Date: 20120925
  Transmission Date: 20130627
  Serious: Yes (Other)
  Sender: FDA-Public Use
  Company Number: BR-PFIZER INC-2012209837

PATIENT
  Sex: Female

DRUGS (2)
  1. DOSTINEX [Suspect]
     Indication: BLOOD PROLACTIN ABNORMAL
     Dosage: 0.25 mg (half tablet of 0.5mg), 2x/week
     Route: 048
     Dates: start: 20120821
  2. SYSTEN SEQUI [Concomitant]
     Indication: HORMONE LEVEL ABNORMAL
     Dosage: UNK

REACTIONS (7)
  - Facial pain [Unknown]
  - Eye swelling [Unknown]
  - Chest pain [Unknown]
  - Head discomfort [Unknown]
  - Pain in jaw [Unknown]
  - Stomatitis [Unknown]
  - Insomnia [Unknown]
